FAERS Safety Report 18462878 (Version 1)
Quarter: 2020Q4

REPORT INFORMATION
  Report Type: Spontaneous
  Country: US (occurrence: US)
  Receive Date: 20201104
  Receipt Date: 20201104
  Transmission Date: 20210114
  Serious: Yes (Death, Other)
  Sender: FDA-Public Use
  Company Number: US-PFIZER INC-2020427822

PATIENT
  Sex: Female

DRUGS (2)
  1. IBRANCE [Suspect]
     Active Substance: PALBOCICLIB
     Indication: METASTASES TO LIVER
     Dosage: 100 MG
  2. FASLODEX [Suspect]
     Active Substance: FULVESTRANT
     Indication: METASTASES TO LIVER
     Dosage: UNK

REACTIONS (2)
  - Neoplasm progression [Fatal]
  - Neutropenia [Unknown]
